FAERS Safety Report 15400776 (Version 1)
Quarter: 2018Q3

REPORT INFORMATION
  Report Type: Spontaneous
  Country: US (occurrence: US)
  Receive Date: 20180913
  Receipt Date: 20180913
  Transmission Date: 20181010
  Serious: Yes (Disabling, Other)
  Sender: FDA-Public Use
  Company Number: None

PATIENT
  Age: 68 Year
  Sex: Male
  Weight: 78.93 kg

DRUGS (1)
  1. MAGNEVIST [Suspect]
     Active Substance: GADOPENTETATE DIMEGLUMINE

REACTIONS (6)
  - Paraesthesia [None]
  - Headache [None]
  - Feeling abnormal [None]
  - Gait disturbance [None]
  - Metal poisoning [None]
  - Thinking abnormal [None]

NARRATIVE: CASE EVENT DATE: 20180721
